FAERS Safety Report 13239404 (Version 1)
Quarter: 2017Q1

REPORT INFORMATION
  Report Type: Spontaneous
  Country: ZA (occurrence: ZA)
  Receive Date: 20170216
  Receipt Date: 20170216
  Transmission Date: 20170428
  Serious: Yes (Other)
  Sender: FDA-Public Use
  Company Number: ZA-BAYER-2017-024147

PATIENT
  Sex: Female

DRUGS (1)
  1. MIRENA [Suspect]
     Active Substance: LEVONORGESTREL
     Dosage: 20 MCG/24HR, CONT
     Route: 015
     Dates: start: 2014, end: 201505

REACTIONS (4)
  - Ovarian cyst [None]
  - Breast mass [None]
  - Tinnitus [None]
  - Seizure [Recovering/Resolving]

NARRATIVE: CASE EVENT DATE: 2015
